FAERS Safety Report 7680356-7 (Version None)
Quarter: 2011Q3

REPORT INFORMATION
  Report Type: 
  Country: None (occurrence: None)
  Receive Date: 20110812
  Receipt Date: 20110804
  Transmission Date: 20111222
  Serious: Yes (Hospitalization)
  Sender: FDA-Public Use
  Company Number: FR-VIIV HEALTHCARE LIMITED-B0737090A

PATIENT
  Sex: Male

DRUGS (5)
  1. RETROVIR [Suspect]
     Indication: HIV INFECTION
     Route: 065
     Dates: start: 20100101, end: 20110318
  2. ABILIFY [Suspect]
     Indication: PRODUCT USED FOR UNKNOWN INDICATION
     Route: 065
     Dates: start: 20100101, end: 20110318
  3. BENZODIAZEPINE [Concomitant]
     Indication: PRODUCT USED FOR UNKNOWN INDICATION
     Route: 065
     Dates: end: 20110318
  4. ZIAGEN [Suspect]
     Indication: HIV INFECTION
     Route: 065
     Dates: start: 20100101, end: 20110318
  5. KALETRA [Suspect]
     Indication: HIV INFECTION
     Route: 065
     Dates: start: 20100101, end: 20110318

REACTIONS (2)
  - RHABDOMYOLYSIS [None]
  - BLOOD CREATINE PHOSPHOKINASE INCREASED [None]
